FAERS Safety Report 12078399 (Version 1)
Quarter: 2016Q1

REPORT INFORMATION
  Report Type: Report from Study
  Country: IN (occurrence: IN)
  Receive Date: 20160216
  Receipt Date: 20160216
  Transmission Date: 20160526
  Serious: Yes (Death)
  Sender: FDA-Public Use
  Company Number: IN-ROCHE-1710517

PATIENT
  Age: 36 Year
  Sex: Male

DRUGS (1)
  1. EXXURA [Suspect]
     Active Substance: PEGINTERFERON ALFA-2A
     Indication: HEPATITIS C
     Route: 058
     Dates: start: 20150418

REACTIONS (3)
  - Renal failure [Fatal]
  - Asthenia [Unknown]
  - White blood cell count increased [Fatal]

NARRATIVE: CASE EVENT DATE: 20150923
